FAERS Safety Report 6964039-4 (Version None)
Quarter: 2010Q3

REPORT INFORMATION
  Report Type: 
  Country: None (occurrence: None)
  Receive Date: 20100902
  Receipt Date: 20100902
  Transmission Date: 20110219
  Serious: Yes (Hospitalization)
  Sender: FDA-Public Use
  Company Number: None

PATIENT
  Age: 63 Year
  Sex: Male
  Weight: 56.2 kg

DRUGS (9)
  1. DOCETAXEL [Suspect]
     Indication: NON-SMALL CELL LUNG CANCER
     Dosage: 95MG (56.25MG/M) IV, QDAY 1
     Route: 042
     Dates: start: 20100723
  2. GEMCITABINE [Suspect]
     Indication: NON-SMALL CELL LUNG CANCER
     Dosage: 1141MG675MG/M2IV, DAY1,8
     Route: 042
     Dates: start: 20100723
  3. DRONABINOL [Concomitant]
  4. OXYCODONE HCL [Concomitant]
  5. ESOMEPRAZOLE MAG TRIHYDRATE [Concomitant]
  6. VERAPAMIL EXTENDED-RELEASE [Concomitant]
  7. DEXAMETHASONE W/CHEMO [Concomitant]
  8. K-DUR [Concomitant]
  9. PROCHLORPERAZINE [Concomitant]

REACTIONS (9)
  - ATTENTION DEFICIT/HYPERACTIVITY DISORDER [None]
  - CONFUSIONAL STATE [None]
  - CSF TEST ABNORMAL [None]
  - DEPRESSED LEVEL OF CONSCIOUSNESS [None]
  - DRUG TOXICITY [None]
  - LUNG INFECTION [None]
  - MALIGNANT NEOPLASM PROGRESSION [None]
  - NON-SMALL CELL LUNG CANCER [None]
  - PNEUMONIA ASPIRATION [None]
